FAERS Safety Report 4638787-5 (Version None)
Quarter: 2005Q2

REPORT INFORMATION
  Report Type: 
  Country: None (occurrence: None)
  Receive Date: 20050328
  Receipt Date: 20041123
  Transmission Date: 20051028
  Serious: No
  Sender: FDA-Public Use
  Company Number: US_0412108805

PATIENT
  Age: 9 Year
  Sex: Female

DRUGS (3)
  1. STRATTERA [Suspect]
     Dosage: 25 MG
     Dates: start: 20030801
  2. KEFLEX [Suspect]
     Indication: PHARYNGITIS STREPTOCOCCAL
     Dosage: 5 MG/ 2 DAY
     Dates: start: 20041105
  3. ZITHROMAX [Concomitant]

REACTIONS (6)
  - DRUG INTERACTION [None]
  - FEELING JITTERY [None]
  - INSOMNIA [None]
  - MIDDLE INSOMNIA [None]
  - SLEEP DISORDER [None]
  - SLEEP WALKING [None]
